FAERS Safety Report 9225736 (Version 1)
Quarter: 2013Q2

REPORT INFORMATION
  Report Type: Spontaneous
  Country: GB (occurrence: GB)
  Receive Date: 20130411
  Receipt Date: 20130411
  Transmission Date: 20140414
  Serious: Yes (Hospitalization)
  Sender: FDA-Public Use
  Company Number: GB-GLAXOSMITHKLINE-B0880558A

PATIENT
  Age: 20 Year
  Sex: Female
  Weight: 60 kg

DRUGS (5)
  1. ONDANSETRON [Suspect]
     Indication: PROPHYLAXIS OF NAUSEA AND VOMITING
     Route: 042
     Dates: start: 20130201, end: 20130201
  2. PROPOFOL [Concomitant]
  3. PARECOXIB SODIUM [Concomitant]
  4. MORPHINE [Concomitant]
  5. ALFENTANIL HYDROCHLORIDE [Concomitant]

REACTIONS (2)
  - Delayed recovery from anaesthesia [Recovered/Resolved]
  - Dystonia [Recovered/Resolved]
